FAERS Safety Report 7651773-6 (Version None)
Quarter: 2011Q3

REPORT INFORMATION
  Report Type: 
  Country: None (occurrence: None)
  Receive Date: 20110802
  Receipt Date: 20110720
  Transmission Date: 20111222
  Serious: Yes (Other)
  Sender: FDA-Public Use
  Company Number: BR-GENENTECH-312136

PATIENT
  Sex: Female
  Weight: 90 kg

DRUGS (5)
  1. PREDNISONE [Concomitant]
     Indication: PRODUCT USED FOR UNKNOWN INDICATION
     Dosage: 5 MG, UNK
  2. METFORMIN HCL [Concomitant]
     Indication: DIABETES MELLITUS
     Dosage: UNK
  3. AMLODIPINE [Concomitant]
     Indication: HYPERTENSION
     Dosage: UNK
  4. CALCIUM ACETATE [Concomitant]
     Indication: PRODUCT USED FOR UNKNOWN INDICATION
     Dosage: UNK
  5. RITUXIMAB [Suspect]
     Indication: RHEUMATOID ARTHRITIS
     Dosage: 1000 MG, Q6M
     Route: 042
     Dates: start: 20090701, end: 20100515

REACTIONS (7)
  - CYST [None]
  - HERPES ZOSTER [None]
  - WEIGHT DECREASED [None]
  - BLOOD PRESSURE FLUCTUATION [None]
  - URINARY TRACT INFECTION [None]
  - DECREASED IMMUNE RESPONSIVENESS [None]
  - BACK PAIN [None]
